FAERS Safety Report 19847452 (Version 1)
Quarter: 2021Q3

REPORT INFORMATION
  Report Type: Spontaneous
  Country: FR (occurrence: FR)
  Receive Date: 20210917
  Receipt Date: 20210917
  Transmission Date: 20211014
  Serious: Yes (Other)
  Sender: FDA-Public Use
  Company Number: FR-MYLANLABS-2021M1062597

PATIENT
  Age: 13 Year
  Sex: Female

DRUGS (1)
  1. ECONAZOLE. [Suspect]
     Active Substance: ECONAZOLE NITRATE
     Indication: ANGULAR CHEILITIS
     Dosage: 1 DOSAGE FORM (2 FOIS PAR JOUR)
     Route: 002
     Dates: start: 20210401, end: 20210401

REACTIONS (2)
  - Pallor [Recovered/Resolved]
  - Face oedema [Recovered/Resolved]

NARRATIVE: CASE EVENT DATE: 20210401
